FAERS Safety Report 17136645 (Version 1)
Quarter: 2019Q4

REPORT INFORMATION
  Report Type: Spontaneous
  Country: ES (occurrence: ES)
  Receive Date: 20191210
  Receipt Date: 20191210
  Transmission Date: 20200122
  Serious: Yes (Other)
  Sender: FDA-Public Use
  Company Number: NVSC2019ES060258

PATIENT
  Age: 69 Year
  Sex: Male
  Weight: 85 kg

DRUGS (10)
  1. RECTOGESIC [GLYCERYL TRINITRATE] [Interacting]
     Active Substance: NITROGLYCERIN
     Indication: ANAL SPHINCTER HYPERTONIA
     Dosage: 1 DF, Q12H (1 APLICACION CADA 12 HORAS)
     Route: 054
     Dates: start: 20190916, end: 20190917
  2. PARACETAMOL [Concomitant]
     Active Substance: ACETAMINOPHEN
     Indication: PRODUCT USED FOR UNKNOWN INDICATION
     Dosage: UNK (1G/100ML)
     Route: 042
  3. ENOXAPARIN [Concomitant]
     Active Substance: ENOXAPARIN
     Indication: PRODUCT USED FOR UNKNOWN INDICATION
     Dosage: UNK
     Route: 058
  4. METAMIZOL [Concomitant]
     Active Substance: METAMIZOLE SODIUM
     Indication: PRODUCT USED FOR UNKNOWN INDICATION
     Dosage: UNK (2G/5ML AMP)
     Route: 042
  5. ENALAPRIL [Suspect]
     Active Substance: ENALAPRIL
     Indication: HYPERTENSION
     Dosage: 20 MG, Q24H (1 CADA 24 HORAS. 1-0-0)
     Route: 048
     Dates: start: 201906, end: 20190911
  6. ENALAPRIL [Interacting]
     Active Substance: ENALAPRIL
     Dosage: 20 MG, Q24H (1 COMPRIMIDO (SI TA MAYOR 150/95) ORAL CADA 24 HORAS (9H))
     Route: 048
     Dates: start: 20190912
  7. DIAZEPAM. [Concomitant]
     Active Substance: DIAZEPAM
     Indication: PRODUCT USED FOR UNKNOWN INDICATION
     Dosage: 5 MG, QD (5 MG ORAL ANTES DE ACOSTARSE (23H))
     Route: 048
  8. PARAFFINA LIQUIDA [Concomitant]
     Indication: PRODUCT USED FOR UNKNOWN INDICATION
     Dosage: UNK
     Route: 048
  9. IBUPROFENO [Concomitant]
     Active Substance: IBUPROFEN
     Indication: PRODUCT USED FOR UNKNOWN INDICATION
     Dosage: UNK
     Route: 048
  10. OMEPRAZOL [Concomitant]
     Active Substance: OMEPRAZOLE
     Indication: PRODUCT USED FOR UNKNOWN INDICATION
     Dosage: UNK
     Route: 048

REACTIONS (2)
  - Fall [Recovering/Resolving]
  - Hypotension [Recovering/Resolving]

NARRATIVE: CASE EVENT DATE: 20190917
